FAERS Safety Report 6241640-7 (Version None)
Quarter: 2009Q2

REPORT INFORMATION
  Report Type: 
  Country: None (occurrence: None)
  Receive Date: 20090623
  Receipt Date: 20040607
  Transmission Date: 20091009
  Serious: Yes (Hospitalization)
  Sender: FDA-Public Use
  Company Number: BR-ROCHE-597111

PATIENT
  Sex: Male

DRUGS (32)
  1. DACLIZUMAB [Suspect]
     Route: 042
     Dates: start: 20030527
  2. DACLIZUMAB [Suspect]
     Route: 042
     Dates: start: 20030609
  3. MYCOPHENOLATE MOFETIL [Suspect]
     Route: 048
     Dates: start: 20030528, end: 20030908
  4. MYCOPHENOLATE MOFETIL [Suspect]
     Route: 048
     Dates: end: 20040225
  5. MYCOPHENOLATE MOFETIL [Suspect]
     Route: 048
     Dates: start: 20040305
  6. MYCOPHENOLATE MOFETIL [Suspect]
     Route: 048
     Dates: start: 20040312
  7. MYCOPHENOLATE MOFETIL [Suspect]
     Route: 048
     Dates: start: 20040507
  8. MYCOPHENOLATE MOFETIL [Suspect]
     Dosage: FORM: DRAG
     Route: 048
     Dates: start: 20030909
  9. MYCOPHENOLATE MOFETIL [Suspect]
     Route: 048
     Dates: start: 20031025
  10. PREDNISONE [Suspect]
     Route: 048
     Dates: start: 20030528, end: 20030820
  11. PREDNISONE [Suspect]
     Route: 048
     Dates: start: 20031205, end: 20051119
  12. PREDNISONE [Suspect]
     Route: 048
     Dates: start: 20030821, end: 20031204
  13. PREDNISONE [Suspect]
     Route: 048
     Dates: start: 20051120
  14. METHYLPREDNISOLONE [Suspect]
     Dosage: DRUG REPORTED: METHILPREDNISOLONE
     Route: 042
     Dates: start: 20030910
  15. SIROLIMUS [Suspect]
     Dosage: DRUG FORM REPORTED AS DRAG.
     Route: 048
     Dates: start: 20030528, end: 20031024
  16. SIROLIMUS [Suspect]
     Route: 048
     Dates: end: 20031025
  17. TACROLIMUS [Suspect]
     Route: 048
     Dates: start: 20031025, end: 20031029
  18. TACROLIMUS [Suspect]
     Route: 048
     Dates: start: 20031107, end: 20031204
  19. TACROLIMUS [Suspect]
     Route: 048
     Dates: start: 20031205, end: 20040722
  20. TACROLIMUS [Suspect]
     Route: 048
     Dates: start: 20040723, end: 20041030
  21. TACROLIMUS [Suspect]
     Route: 048
     Dates: start: 20041031
  22. TACROLIMUS [Suspect]
     Route: 048
     Dates: start: 20031030, end: 20031106
  23. ACYCLOVIR [Concomitant]
     Route: 042
     Dates: start: 20040223, end: 20040302
  24. AMOXICILLIN [Concomitant]
     Route: 048
     Dates: start: 20031114, end: 20031120
  25. CEPHALEXIN [Concomitant]
     Route: 048
     Dates: start: 20030528, end: 20030530
  26. CEPHALEXIN [Concomitant]
     Route: 048
     Dates: end: 20030601
  27. CEPHALOTIN [Concomitant]
     Route: 042
     Dates: start: 20030527, end: 20030529
  28. CHLORTHALIDONE [Concomitant]
     Route: 048
     Dates: start: 20031003, end: 20041027
  29. FUROSEMIDE [Concomitant]
     Route: 048
     Dates: start: 20031121
  30. PROPRANOLOL HYDROCHLORIDE [Concomitant]
     Route: 048
     Dates: start: 20030528, end: 20030529
  31. PROPRANOLOL HYDROCHLORIDE [Concomitant]
     Route: 048
     Dates: start: 20030531
  32. SULFAMETHOXAZOLE AND TRIMETHOPRIM [Concomitant]
     Dosage: DRUG REPORTED: SULFAMETHOXAZOL + TRIMETHOPRIM
     Route: 048
     Dates: start: 20030528

REACTIONS (1)
  - HERPES ZOSTER [None]
